FAERS Safety Report 21301740 (Version 1)
Quarter: 2022Q3

REPORT INFORMATION
  Report Type: Spontaneous
  Country: EG (occurrence: EG)
  Receive Date: 20220907
  Receipt Date: 20220907
  Transmission Date: 20221026
  Serious: Yes (Other)
  Sender: FDA-Public Use
  Company Number: EG-TAKEDA-2021TUS064847

PATIENT

DRUGS (1)
  1. FLEXBUMIN [Suspect]
     Active Substance: ALBUMIN HUMAN
     Indication: Product used for unknown indication
     Dosage: UNK
     Route: 065

REACTIONS (4)
  - Blood pressure increased [Recovered/Resolved with Sequelae]
  - Pyrexia [Recovered/Resolved with Sequelae]
  - Heart rate increased [Recovered/Resolved with Sequelae]
  - Respiratory rate decreased [Recovered/Resolved with Sequelae]
